FAERS Safety Report 13122065 (Version 1)
Quarter: 2017Q1

REPORT INFORMATION
  Report Type: Spontaneous
  Country: GR (occurrence: GR)
  Receive Date: 20170117
  Receipt Date: 20170117
  Transmission Date: 20170428
  Serious: Yes (Death)
  Sender: FDA-Public Use
  Company Number: GR-009507513-1701GRC007208

PATIENT
  Age: 52 Year
  Sex: Male

DRUGS (4)
  1. MIRTAZAPINE. [Suspect]
     Active Substance: MIRTAZAPINE
     Dosage: UNK
     Route: 048
  2. DELTAMETHRIN [Interacting]
     Active Substance: DELTAMETHRIN
     Dosage: UNK
     Route: 048
  3. ALPHA-CYPERMETHRIN [Interacting]
     Active Substance: .ALPHA.-CYPERMETHRIN
     Dosage: UNK
     Route: 048
  4. ALCOHOL. [Suspect]
     Active Substance: ALCOHOL
     Dosage: UNK

REACTIONS (5)
  - Toxicity to various agents [Fatal]
  - Completed suicide [None]
  - Visceral oedema [None]
  - Intentional overdose [Unknown]
  - Vomiting [None]
